FAERS Safety Report 14383875 (Version 2)
Quarter: 2018Q1

REPORT INFORMATION
  Report Type: Report from Study
  Country: None (occurrence: RO)
  Receive Date: 20180115
  Receipt Date: 20180311
  Transmission Date: 20180509
  Serious: Yes (Hospitalization, Other)
  Sender: FDA-Public Use
  Company Number: RO-ABBVIE-18K-135-2221443-00

PATIENT
  Age: 63 Year
  Sex: Male

DRUGS (3)
  1. NALDOREX [Concomitant]
     Indication: HEADACHE
     Route: 048
  2. HUMIRA [Suspect]
     Active Substance: ADALIMUMAB
     Route: 058
  3. HUMIRA [Suspect]
     Active Substance: ADALIMUMAB
     Indication: CROHN^S DISEASE
     Route: 058
     Dates: start: 20140606

REACTIONS (1)
  - Rectal polyp [Recovered/Resolved]

NARRATIVE: CASE EVENT DATE: 20171106
